FAERS Safety Report 12880605 (Version 1)
Quarter: 2016Q4

REPORT INFORMATION
  Report Type: Spontaneous
  Country: US (occurrence: US)
  Receive Date: 20161021
  Receipt Date: 20161021
  Transmission Date: 20170207
  Serious: No
  Sender: FDA-Public Use
  Company Number: None

PATIENT
  Sex: Female

DRUGS (1)
  1. ENBREL [Suspect]
     Active Substance: ETANERCEPT
     Indication: PRODUCT USED FOR UNKNOWN INDICATION
     Dosage: EVERY 7 DAYS
     Route: 058
     Dates: start: 201606

REACTIONS (4)
  - Nausea [None]
  - Feeling abnormal [None]
  - Fatigue [None]
  - Headache [None]
